FAERS Safety Report 6643136-7 (Version None)
Quarter: 2010Q1

REPORT INFORMATION
  Report Type: 
  Country: None (occurrence: None)
  Receive Date: 20100319
  Receipt Date: 20100309
  Transmission Date: 20100710
  Serious: Yes (Hospitalization, Other)
  Sender: FDA-Public Use
  Company Number: PHHY2010DE15266

PATIENT
  Sex: Male
  Weight: 82 kg

DRUGS (7)
  1. DIOVAN HCT [Suspect]
     Indication: HYPERTENSION
     Dosage: 1 DF, PER DAY
     Route: 048
     Dates: start: 20070701, end: 20090208
  2. DIOVAN HCT [Suspect]
     Indication: HYPERTENSION
     Dosage: 1 DF, PER DAY
     Route: 048
     Dates: start: 20090209
  3. NO TREATMENT RECEIVED NOMED [Suspect]
  4. ASPIRIN [Concomitant]
     Indication: CORONARY ARTERY DISEASE
     Dosage: 100 MG, PER DAY
     Route: 048
     Dates: start: 20070101
  5. SIMVAHEXAL [Concomitant]
     Indication: HYPERCHOLESTEROLAEMIA
     Dosage: 30 MG, PER DAY
     Route: 048
     Dates: start: 20070701
  6. METOPROLOL RETARD [Concomitant]
     Indication: HYPERTENSION
     Dosage: 50 MG, PER DAY
     Route: 048
     Dates: start: 20070701
  7. ACE INHIBITOR NOS [Concomitant]
     Dosage: UNK
     Dates: start: 20091107

REACTIONS (7)
  - ANGINA PECTORIS [None]
  - BLOOD TRIGLYCERIDES INCREASED [None]
  - CARDIAC FAILURE [None]
  - DYSPNOEA [None]
  - HEART RATE DECREASED [None]
  - MYOCARDIAL INFARCTION [None]
  - PERCUTANEOUS CORONARY INTERVENTION [None]
